FAERS Safety Report 8974212 (Version 1)
Quarter: 2012Q4

REPORT INFORMATION
  Report Type: Spontaneous
  Country: GB (occurrence: None)
  Receive Date: 20121213
  Receipt Date: 20121213
  Transmission Date: 20130627
  Serious: Yes (Other)
  Sender: FDA-Public Use
  Company Number: 2012GMK004452

PATIENT
  Age: 30 Year
  Sex: Female

DRUGS (2)
  1. TROSPIUM CHLORIDE [Suspect]
     Indication: DRUG USE FOR UNKNOWN INDICATION
     Dosage: od
     Dates: start: 201101
  2. REBIF [Suspect]
     Indication: MULTIPLE SCLEROSIS
     Dates: start: 201001

REACTIONS (3)
  - Abortion spontaneous [None]
  - Exposure via father [None]
  - Pregnancy [None]
